FAERS Safety Report 4278571-8 (Version None)
Quarter: 2004Q1

REPORT INFORMATION
  Report Type: 
  Country: None (occurrence: None)
  Receive Date: 20040122
  Receipt Date: 20040106
  Transmission Date: 20041129
  Serious: Yes (Hospitalization)
  Sender: FDA-Public Use
  Company Number: F01200400017

PATIENT
  Age: 57 Year
  Sex: Female

DRUGS (3)
  1. OXALIPLATIN - SOLUTION - 50 MG/M2 [Suspect]
     Indication: RECTAL CANCER
     Dosage: 77 MG 1/WEEK, INTRAVEOUS NOS
     Route: 042
     Dates: start: 20040106, end: 20040106
  2. CAPECITABINE - TABLET - 825 MG/M2 [Suspect]
     Dosage: 1300 MG (TWICE A DAY) FOR 5 DAYS EACH WEEK FOR 5 WEEKS, ORAL
     Route: 048
     Dates: start: 20040106, end: 20040106
  3. SYMBICORT (BUDENOSIDE+FORMOTEROL FUMARATE) [Concomitant]

REACTIONS (1)
  - MYOCARDIAL ISCHAEMIA [None]
